FAERS Safety Report 7554806-0 (Version None)
Quarter: 2011Q2

REPORT INFORMATION
  Report Type: 
  Country: None (occurrence: None)
  Receive Date: 20110610
  Receipt Date: 20110607
  Transmission Date: 20111010
  Serious: Yes (Other)
  Sender: FDA-Public Use
  Company Number: PHHY2011JP40213

PATIENT
  Age: 14 Year
  Sex: Male

DRUGS (1)
  1. VISUDYNE [Suspect]
     Indication: RETINAL ANEURYSM
     Dates: start: 20090612, end: 20090612

REACTIONS (4)
  - RETINOBLASTOMA [None]
  - VITREOUS DISORDER [None]
  - RETINAL DETACHMENT [None]
  - RETINAL TEAR [None]
